FAERS Safety Report 10040695 (Version 1)
Quarter: 2014Q1

REPORT INFORMATION
  Report Type: Report from Study
  Country: EG (occurrence: EG)
  Receive Date: 20140327
  Receipt Date: 20140327
  Transmission Date: 20141002
  Serious: Yes (Hospitalization, Other)
  Sender: FDA-Public Use
  Company Number: EG-SA-2014SA035565

PATIENT
  Sex: Male

DRUGS (1)
  1. LANTUS [Suspect]
     Indication: TYPE 1 DIABETES MELLITUS
     Route: 058
     Dates: start: 20111225

REACTIONS (2)
  - Wound infection [Recovered/Resolved]
  - Ill-defined disorder [Recovered/Resolved]
